FAERS Safety Report 19777518 (Version 2)
Quarter: 2025Q2

REPORT INFORMATION
  Report Type: Report from Study
  Country: ES (occurrence: ES)
  Receive Date: 20210902
  Receipt Date: 20250530
  Transmission Date: 20250717
  Serious: Yes (Other)
  Sender: AUROBINDO
  Company Number: ES-CHEPLA-2021001189

PATIENT
  Age: 13 Month
  Sex: Female

DRUGS (8)
  1. VALGANCICLOVIR [Suspect]
     Active Substance: VALGANCICLOVIR
     Indication: Antiviral treatment
     Route: 065
  2. ACYCLOVIR [Suspect]
     Active Substance: ACYCLOVIR
     Indication: Antiviral treatment
     Route: 065
  3. CIDOFOVIR [Suspect]
     Active Substance: CIDOFOVIR
     Indication: Antiviral treatment
     Route: 065
  4. FOSCARNET [Suspect]
     Active Substance: FOSCARNET
     Indication: Antiviral treatment
     Route: 065
  5. GANCICLOVIR [Suspect]
     Active Substance: GANCICLOVIR
     Indication: Antiviral treatment
     Route: 065
  6. LEFLUNOMIDE [Suspect]
     Active Substance: LEFLUNOMIDE
     Indication: Antiviral treatment
     Route: 065
  7. RITUXIMAB [Suspect]
     Active Substance: RITUXIMAB
     Indication: Antiviral treatment
     Route: 065
  8. HUMAN CYTOMEGALOVIRUS IMMUNE GLOBULIN [Concomitant]
     Active Substance: HUMAN CYTOMEGALOVIRUS IMMUNE GLOBULIN
     Indication: Antiviral treatment
     Route: 065

REACTIONS (3)
  - Drug resistance [Unknown]
  - Hepatotoxicity [Unknown]
  - Product use issue [Unknown]
